FAERS Safety Report 8844136 (Version 1)
Quarter: 2012Q4

REPORT INFORMATION
  Report Type: 
  Country: US (occurrence: US)
  Receive Date: 20121016
  Receipt Date: 20121016
  Transmission Date: 20130627
  Serious: Yes (Death, Hospitalization, Other)
  Sender: FDA-Public Use
  Company Number: US-TEVA-357738USA

PATIENT
  Age: 60 None
  Sex: Male

DRUGS (4)
  1. CLOZAPINE [Suspect]
     Indication: SCHIZOPHRENIA
     Dosage: 175 mg in AM, 400 mg in PM
     Route: 048
     Dates: end: 20120802
  2. LAMICTAL [Concomitant]
     Dosage: 150 Milligram Daily;
  3. MIRALAX [Concomitant]
     Dosage: 17 Gram Daily;
  4. NEXIUM [Concomitant]
     Dosage: 40 Milligram Daily;

REACTIONS (7)
  - Convulsion [Fatal]
  - Hyponatraemia [Fatal]
  - Cardiac arrest [Fatal]
  - Leukocytosis [Fatal]
  - Brain injury [Fatal]
  - Pneumonia [Unknown]
  - Unresponsive to stimuli [Unknown]
